FAERS Safety Report 5416112-X (Version None)
Quarter: 2007Q3

REPORT INFORMATION
  Report Type: 
  Country: None (occurrence: None)
  Receive Date: 20070718
  Receipt Date: 20070312
  Transmission Date: 20080115
  Serious: Yes (Hospitalization, Other)
  Sender: FDA-Public Use
  Company Number: 2007019319

PATIENT
  Age: 61 Year
  Sex: Male
  Weight: 136.1 kg

DRUGS (2)
  1. CELEBREX [Suspect]
     Indication: BACK INJURY
     Dosage: 200 MG (200 MG, 1 IN 1 D)
     Dates: start: 19960901, end: 20000501
  2. BEXTRA [Suspect]
     Indication: JOINT INJURY
     Dosage: 20 MG (20 MG, 1 IN 1 D)
     Dates: start: 20031216, end: 20040401

REACTIONS (1)
  - MYOCARDIAL INFARCTION [None]
